FAERS Safety Report 18468884 (Version 2)
Quarter: 2020Q4

REPORT INFORMATION
  Report Type: Spontaneous
  Country: IT (occurrence: IT)
  Receive Date: 20201105
  Receipt Date: 20201218
  Transmission Date: 20210114
  Serious: Yes (Disabling)
  Sender: FDA-Public Use
  Company Number: IT-METUCHEN-STN-2020-0277

PATIENT
  Age: 28 Year
  Sex: Male

DRUGS (5)
  1. CIALIS [Concomitant]
     Active Substance: TADALAFIL
     Dosage: 10 MG OCCASIONALLY OR 5 MG FOR PROLONGED PERIODS OF AT LEAST ONE MONTH
     Route: 048
     Dates: start: 201705, end: 201706
  2. PROPECIA [Concomitant]
     Active Substance: FINASTERIDE
     Indication: ANDROGENETIC ALOPECIA
     Dosage: 1MG DAILY
     Route: 048
     Dates: start: 201107, end: 201504
  3. SPEDRA (AVANAFIL) TABLETS [Suspect]
     Active Substance: AVANAFIL
     Indication: ERECTILE DYSFUNCTION
     Route: 048
  4. CIALIS [Concomitant]
     Active Substance: TADALAFIL
     Indication: ERECTILE DYSFUNCTION
     Dosage: 10 MG OCCASIONALLY OR 5 MG FOR PROLONGED PERIODS OF AT LEAST ONE MONTH
     Route: 048
     Dates: start: 201708
  5. CIALIS [Concomitant]
     Active Substance: TADALAFIL
     Dosage: 10 MG OCCASIONALLY OR 5 MG FOR PROLONGED PERIODS OF AT LEAST ONE MONTH
     Route: 048
     Dates: start: 201609, end: 201610

REACTIONS (17)
  - Post 5-alpha-reductase inhibitor syndrome [Not Recovered/Not Resolved]
  - Weight decreased [Unknown]
  - Headache [Unknown]
  - Weight increased [Unknown]
  - Fasting [Unknown]
  - Vitamin B12 deficiency [Unknown]
  - Fatigue [Unknown]
  - Stress at work [Unknown]
  - Vitamin D deficiency [Unknown]
  - Blood testosterone free decreased [Unknown]
  - Mental impairment [Unknown]
  - Libido increased [Unknown]
  - Malnutrition [Unknown]
  - Ligament rupture [Unknown]
  - Disturbance in attention [Unknown]
  - Abdominal pain [Unknown]
  - Androgenetic alopecia [Unknown]

NARRATIVE: CASE EVENT DATE: 2011
